FAERS Safety Report 23196017 (Version 1)
Quarter: 2023Q4

REPORT INFORMATION
  Report Type: Spontaneous
  Country: US (occurrence: None)
  Receive Date: 20231116
  Receipt Date: 20231116
  Transmission Date: 20240110
  Serious: Yes (Hospitalization)
  Sender: FDA-Public Use
  Company Number: None

PATIENT
  Sex: Male

DRUGS (19)
  1. DUPIXENT [Suspect]
     Active Substance: DUPILUMAB
     Indication: Dermatitis atopic
     Dosage: OTHER FREQUENCY : EVERY OTHER WEEK;?
     Route: 058
  2. TRADJENTA [Concomitant]
     Active Substance: LINAGLIPTIN
  3. atorastatin [Concomitant]
  4. METOPROLOL [Concomitant]
     Active Substance: METOPROLOL
  5. GABAPENTIN [Concomitant]
     Active Substance: GABAPENTIN
  6. WELCHOL [Concomitant]
     Active Substance: COLESEVELAM HYDROCHLORIDE
  7. PANTOPRAZOLE [Concomitant]
     Active Substance: PANTOPRAZOLE
  8. ERGOCALCIFEROL [Concomitant]
     Active Substance: ERGOCALCIFEROL
  9. FISH OIL [Concomitant]
     Active Substance: FISH OIL
  10. HUMULIN NOS [Concomitant]
     Active Substance: INSULIN HUMAN
  11. METOLAZONE [Concomitant]
     Active Substance: METOLAZONE
  12. OXYBUTYNIN [Concomitant]
     Active Substance: OXYBUTYNIN
  13. BRILINTA [Concomitant]
     Active Substance: TICAGRELOR
  14. LISINOPRIL [Concomitant]
     Active Substance: LISINOPRIL
  15. FINASTERIDE [Concomitant]
     Active Substance: FINASTERIDE
  16. FUROSEMIDE [Concomitant]
     Active Substance: FUROSEMIDE
  17. AMLODIPINE [Concomitant]
     Active Substance: AMLODIPINE BESYLATE
  18. ACETAMINOPHEN [Concomitant]
     Active Substance: ACETAMINOPHEN
  19. OCUVITE [Concomitant]
     Active Substance: VITAMINS

REACTIONS (3)
  - Spinal osteoarthritis [None]
  - Spinal stenosis [None]
  - Deep vein thrombosis [None]
